FAERS Safety Report 4762592-2 (Version None)
Quarter: 2005Q3

REPORT INFORMATION
  Report Type: 
  Country: None (occurrence: None)
  Receive Date: 20050907
  Receipt Date: 20050829
  Transmission Date: 20060218
  Serious: Yes (Death)
  Sender: FDA-Public Use
  Company Number: JPKYO-S-20050023

PATIENT
  Age: 66 Year
  Sex: Male

DRUGS (2)
  1. NAVELBINE [Suspect]
     Route: 042
     Dates: start: 20050727
  2. PARAPLATIN [Suspect]
     Route: 042
     Dates: start: 20050727, end: 20050727

REACTIONS (2)
  - DEATH [None]
  - LIVER DISORDER [None]
